FAERS Safety Report 4908384-2 (Version None)
Quarter: 2006Q1

REPORT INFORMATION
  Report Type: 
  Country: None (occurrence: None)
  Receive Date: 20060210
  Receipt Date: 20060201
  Transmission Date: 20060701
  Serious: Yes (Hospitalization)
  Sender: FDA-Public Use
  Company Number: US-AVENTIS-200611227US

PATIENT
  Sex: Female
  Weight: 79.54 kg

DRUGS (6)
  1. LANTUS [Suspect]
     Indication: DIABETES MELLITUS
     Dosage: DOSE: 16 TO 26 UNITS
     Dates: start: 20050601, end: 20060201
  2. OPTICLIK (INSULIN INJECTION PEN) [Suspect]
     Indication: DIABETES MELLITUS
     Dates: start: 20050101
  3. HUMALOG [Concomitant]
     Dosage: DOSE: UNKNOWN
  4. ACTOS [Concomitant]
     Dosage: DOSE: UNKNOWN
     Dates: end: 20060202
  5. CARDIOVASCULAR SYSTEM DRUGS [Concomitant]
     Dosage: DOSE: UNKNOWN
  6. GLUCOPHAGE [Concomitant]
     Dosage: DOSE: UNKNOWN
     Dates: start: 20051101, end: 20060101

REACTIONS (5)
  - BLOOD GLUCOSE INCREASED [None]
  - CONSTIPATION [None]
  - MYALGIA [None]
  - PARAESTHESIA [None]
  - TREMOR [None]
